FAERS Safety Report 5479965-5 (Version None)
Quarter: 2007Q4

REPORT INFORMATION
  Report Type: 
  Country: None (occurrence: None)
  Receive Date: 20071008
  Receipt Date: 20071002
  Transmission Date: 20080405
  Serious: Yes (Hospitalization)
  Sender: FDA-Public Use
  Company Number: AU-MERCK-0710AUS00010

PATIENT
  Age: 85 Year
  Sex: Female

DRUGS (3)
  1. FOSAMAX [Suspect]
     Indication: OSTEOPOROSIS
     Route: 048
     Dates: start: 20020712, end: 20020712
  2. DILTIAZEM HYDROCHLORIDE [Concomitant]
     Route: 065
  3. OMEPRAZOLE [Concomitant]
     Route: 065

REACTIONS (9)
  - ANOREXIA [None]
  - ASTHENIA [None]
  - DIARRHOEA [None]
  - GASTRITIS [None]
  - LETHARGY [None]
  - NAUSEA [None]
  - RASH [None]
  - RENAL IMPAIRMENT [None]
  - WEIGHT DECREASED [None]
